FAERS Safety Report 9354458 (Version 1)
Quarter: 2013Q2

REPORT INFORMATION
  Report Type: Spontaneous
  Country: US (occurrence: US)
  Receive Date: 20130618
  Receipt Date: 20130618
  Transmission Date: 20140414
  Serious: Yes (Other)
  Sender: FDA-Public Use
  Company Number: US-BAXTER-2013BAX022048

PATIENT
  Age: 77 Year
  Sex: Female

DRUGS (10)
  1. GENTAMICIN SULFATE [Suspect]
     Indication: ENDOCARDITIS STAPHYLOCOCCAL
     Dosage: GOAL PEAK OF 3-4 MG/L
     Route: 065
  2. GENTAMICIN SULFATE IN 0.9% SODIUM CHLORIDE INJECTION [Suspect]
     Route: 065
  3. VANCOMYCIN [Concomitant]
     Indication: SEPTIC SHOCK
     Route: 065
  4. VANCOMYCIN [Concomitant]
     Indication: SMALL INTESTINAL OBSTRUCTION
  5. VANCOMYCIN [Concomitant]
     Indication: ENDOCARDITIS STAPHYLOCOCCAL
  6. RIFAMPIN [Concomitant]
     Indication: ENDOCARDITIS STAPHYLOCOCCAL
     Route: 065
  7. PIPERACILLIN TAZOBACTAM [Concomitant]
     Indication: SEPTIC SHOCK
     Route: 065
  8. PIPERACILLIN TAZOBACTAM [Concomitant]
     Indication: SMALL INTESTINAL OBSTRUCTION
  9. ANIDULAFUNGIN [Concomitant]
     Indication: SEPTIC SHOCK
     Route: 065
  10. ANIDULAFUNGIN [Concomitant]
     Indication: SMALL INTESTINAL OBSTRUCTION

REACTIONS (2)
  - False negative investigation result [Not Recovered/Not Resolved]
  - General physical health deterioration [None]
